FAERS Safety Report 11201585 (Version 2)
Quarter: 2015Q3

REPORT INFORMATION
  Report Type: Spontaneous
  Country: US (occurrence: None)
  Receive Date: 20150617
  Receipt Date: 20150708
  Transmission Date: 20151125
  Serious: Yes (Hospitalization, Other)
  Sender: FDA-Public Use
  Company Number: ADR-2015-01136

PATIENT
  Age: 77 Year
  Sex: Female

DRUGS (2)
  1. COMPOUNDED BACLOFEN INTRATHECAL [Suspect]
     Active Substance: BACLOFEN
     Indication: MUSCLE SPASTICITY
  2. CLONIDINE. [Suspect]
     Active Substance: CLONIDINE

REACTIONS (4)
  - Incontinence [None]
  - Hypoaesthesia oral [None]
  - Hypoaesthesia [None]
  - Device issue [None]

NARRATIVE: CASE EVENT DATE: 20150607
